FAERS Safety Report 9143036 (Version 1)
Quarter: 2013Q1

REPORT INFORMATION
  Report Type: Spontaneous
  Country: US (occurrence: US)
  Receive Date: 20130306
  Receipt Date: 20130306
  Transmission Date: 20140127
  Serious: No
  Sender: FDA-Public Use
  Company Number: US-PFIZER INC-2013074986

PATIENT
  Age: 78 Year
  Sex: Female

DRUGS (5)
  1. LIPITOR [Suspect]
     Indication: LOW DENSITY LIPOPROTEIN INCREASED
     Dosage: 10 MG, 1X/DAY
  2. ENALAPRIL MALEATE [Suspect]
     Dosage: UNK
  3. TENORMIN [Concomitant]
     Indication: HYPERTENSION
     Dosage: 50 MG, 1X/DAY
     Dates: start: 1985
  4. DIOVAN (VALSARTAN) [Concomitant]
     Indication: HYPERTENSION
     Dosage: UNK, 1X/DAY
  5. NORVASC [Concomitant]
     Indication: HYPERTENSION
     Dosage: 10 MG, DAILY
     Dates: start: 1994

REACTIONS (2)
  - Drug ineffective [Unknown]
  - Muscle spasms [Recovered/Resolved]
